FAERS Safety Report 8985697 (Version 4)
Quarter: 2013Q4

REPORT INFORMATION
  Report Type: Other
  Country: AU (occurrence: AU)
  Receive Date: 20121226
  Receipt Date: 20131114
  Transmission Date: 20140711
  Serious: No
  Sender: FDA-Public Use
  Company Number: AU-SHIRE-ALL1-2012-06406

PATIENT
  Age: 76 Year
  Sex: Female

DRUGS (1)
  1. AGRYLIN [Suspect]
     Indication: THROMBOCYTOSIS
     Dosage: 0.5 MG, 2X/DAY:BID
     Route: 048
     Dates: start: 201112, end: 2013

REACTIONS (3)
  - Splenomegaly [Recovering/Resolving]
  - Disease progression [Not Recovered/Not Resolved]
  - Dyspepsia [Unknown]
